FAERS Safety Report 20192710 (Version 1)
Quarter: 2021Q4

REPORT INFORMATION
  Report Type: Spontaneous
  Country: US (occurrence: US)
  Receive Date: 20211216
  Receipt Date: 20211216
  Transmission Date: 20220303
  Serious: Yes (Other)
  Sender: FDA-Public Use
  Company Number: US-drreddys-SPO/USA/21/0144625

PATIENT
  Age: 24 Year
  Sex: Male

DRUGS (1)
  1. ACCUTANE [Suspect]
     Active Substance: ISOTRETINOIN
     Indication: Product used for unknown indication
     Dosage: RMA ISSUE DATE:12 AUGUST 2021 6:25:12 PM,23 SEPTEMBER 2021 11:15:40 AM,22 OCTOBER 2021 1:34:13 PM
     Dates: start: 20210812, end: 20211206

REACTIONS (1)
  - Anxiety [Unknown]
